FAERS Safety Report 7798983-5 (Version None)
Quarter: 2011Q4

REPORT INFORMATION
  Report Type: 
  Country: None (occurrence: None)
  Receive Date: 20111006
  Receipt Date: 20110328
  Transmission Date: 20120403
  Serious: Yes (Hospitalization, Other)
  Sender: FDA-Public Use
  Company Number: US-BAYER-2010-003136

PATIENT
  Age: 20 Year
  Sex: Female
  Weight: 101 kg

DRUGS (16)
  1. NAPROXEN [Concomitant]
     Indication: MUSCULOSKELETAL PAIN
     Dosage: UNK
     Dates: start: 20060101, end: 20070101
  2. AMOXICILLIN [Concomitant]
     Dosage: 500 MG, UNK
     Route: 048
     Dates: start: 20080925
  3. PREVACID [Concomitant]
     Indication: GASTROOESOPHAGEAL REFLUX DISEASE
     Dosage: UNK
     Dates: start: 20060101, end: 20070101
  4. LOESTRIN FE 1/20 [Concomitant]
     Indication: CONTRACEPTION
     Dosage: UNK
     Dates: start: 20100101
  5. CLARINEX [Concomitant]
     Indication: SEASONAL ALLERGY
     Dosage: UNK
     Dates: start: 20060101
  6. PROTONIX [Concomitant]
     Dosage: 40 MG, UNK
  7. KETOROLAC TROMETHAMINE [Concomitant]
     Dosage: 10 MG, UNK
     Route: 048
     Dates: start: 20081014
  8. YAZ [Suspect]
     Indication: PRODUCT USED FOR UNKNOWN INDICATION
     Dosage: UNK
     Route: 048
     Dates: start: 20070101, end: 20091201
  9. LEXAPRO [Concomitant]
     Route: 048
  10. PROMETHAZINE [Concomitant]
     Dosage: 25 MG, UNK
     Route: 054
     Dates: start: 20081010
  11. ANTIBIOTICS [Concomitant]
  12. VICODIN [Concomitant]
     Route: 048
  13. ABILIFY [Concomitant]
     Dosage: 10 MG, QD
     Route: 048
  14. TENEX [Concomitant]
     Route: 048
  15. NALTREXONE HYDROCHLORIDE [Concomitant]
     Dosage: 50 MG, UNK
     Route: 048
     Dates: start: 20080716
  16. NABUMETONE [Concomitant]
     Dosage: 500 MG, UNK
     Route: 048
     Dates: start: 20081016

REACTIONS (8)
  - PAIN [None]
  - DIARRHOEA [None]
  - CHOLECYSTITIS [None]
  - VOMITING [None]
  - CHOLELITHIASIS [None]
  - ABDOMINAL PAIN UPPER [None]
  - EMOTIONAL DISTRESS [None]
  - BILIARY DYSKINESIA [None]
